FAERS Safety Report 12643344 (Version 2)
Quarter: 2016Q3

REPORT INFORMATION
  Report Type: Spontaneous
  Country: AU (occurrence: AU)
  Receive Date: 20160811
  Receipt Date: 20160927
  Transmission Date: 20161109
  Serious: No
  Sender: FDA-Public Use
  Company Number: AU-LUPIN PHARMACEUTICALS INC.-2016-03339

PATIENT
  Age: 78 Year
  Sex: Female

DRUGS (3)
  1. DULOXETINE RBX [Suspect]
     Active Substance: DULOXETINE
     Indication: DEPRESSION
     Route: 065
  2. DULOXETINE RBX [Suspect]
     Active Substance: DULOXETINE
     Indication: ANXIETY
  3. DULOXETINE RBX [Suspect]
     Active Substance: DULOXETINE
     Indication: CRYING

REACTIONS (5)
  - Withdrawal syndrome [Unknown]
  - Hyperhidrosis [Unknown]
  - Pruritus [Unknown]
  - Panic attack [Unknown]
  - Nausea [Unknown]
